FAERS Safety Report 21921414 (Version 2)
Quarter: 2023Q1

REPORT INFORMATION
  Report Type: Spontaneous
  Country: CY (occurrence: CY)
  Receive Date: 20230127
  Receipt Date: 20230131
  Transmission Date: 20230417
  Serious: Yes (Other)
  Sender: FDA-Public Use
  Company Number: None

PATIENT

DRUGS (2)
  1. ESCITALOPRAM OXALATE [Suspect]
     Active Substance: ESCITALOPRAM OXALATE
     Indication: Product used for unknown indication
     Dosage: 20 MG, QD
     Dates: start: 202105
  2. LYRICA [Concomitant]
     Active Substance: PREGABALIN
     Dosage: 75 MG, QD
     Dates: start: 202105

REACTIONS (7)
  - Suicidal ideation [Recovering/Resolving]
  - Fatigue [Recovering/Resolving]
  - Anxiety [Recovering/Resolving]
  - Dyspnoea [Not Recovered/Not Resolved]
  - Depression [Recovering/Resolving]
  - Libido decreased [Not Recovered/Not Resolved]
  - Major depression [Recovering/Resolving]

NARRATIVE: CASE EVENT DATE: 20210601
